FAERS Safety Report 5320072-X (Version None)
Quarter: 2007Q2

REPORT INFORMATION
  Report Type: 
  Country: None (occurrence: None)
  Receive Date: 20070509
  Receipt Date: 20070503
  Transmission Date: 20071010
  Serious: Yes (Other)
  Sender: FDA-Public Use
  Company Number: AUWYE561102MAY07

PATIENT
  Sex: Female
  Weight: 65 kg

DRUGS (6)
  1. EFFEXOR XR [Suspect]
     Indication: DEPRESSION
     Route: 048
     Dates: end: 20070326
  2. EFFEXOR XR [Interacting]
     Indication: ANXIETY
     Route: 048
     Dates: start: 20070327
  3. COLESE [Concomitant]
     Indication: GASTROINTESTINAL DISORDER
     Route: 048
     Dates: start: 20040101
  4. XANAX [Concomitant]
     Indication: ANXIETY
     Dosage: 1 MG DAILY AS NEEDED
     Route: 048
     Dates: start: 20050101
  5. IMOVANE [Interacting]
     Indication: INSOMNIA
     Route: 048
     Dates: start: 20070201
  6. NEXIUM [Concomitant]
     Indication: GASTROOESOPHAGEAL REFLUX DISEASE
     Route: 048
     Dates: start: 20040101

REACTIONS (3)
  - DRUG EFFECT DECREASED [None]
  - DRUG INTERACTION [None]
  - SUICIDAL IDEATION [None]
